FAERS Safety Report 22096534 (Version 1)
Quarter: 2023Q1

REPORT INFORMATION
  Report Type: Spontaneous
  Country: US (occurrence: US)
  Receive Date: 20230315
  Receipt Date: 20230315
  Transmission Date: 20230418
  Serious: No
  Sender: FDA-Public Use
  Company Number: US-PADAGIS-2023PAD00251

PATIENT

DRUGS (7)
  1. KETOCONAZOLE [Suspect]
     Active Substance: KETOCONAZOLE
     Indication: Dermatitis diaper
     Dosage: UNK
     Route: 065
  2. HYDROCORTISONE [Suspect]
     Active Substance: HYDROCORTISONE
     Indication: Dermatitis diaper
     Dosage: UNK
     Route: 065
  3. TRIAMCINOLONE ACETONIDE [Suspect]
     Active Substance: TRIAMCINOLONE ACETONIDE
     Indication: Dermatitis diaper
     Dosage: UNK
     Route: 065
  4. MUPIROCIN [Suspect]
     Active Substance: MUPIROCIN
     Indication: Dermatitis diaper
     Dosage: UNK
     Route: 065
  5. ZINC OXIDE [Suspect]
     Active Substance: ZINC OXIDE
     Indication: Dermatitis diaper
     Dosage: UNK
     Route: 065
  6. PETROLATUM [Suspect]
     Active Substance: PETROLATUM
     Indication: Dermatitis diaper
     Dosage: UNK
     Route: 065
  7. GENTAMICIN [Suspect]
     Active Substance: GENTAMICIN
     Indication: Dermatitis diaper
     Dosage: UNK
     Route: 048

REACTIONS (3)
  - Treatment failure [Unknown]
  - Product use in unapproved indication [Unknown]
  - Product use issue [Unknown]
